FAERS Safety Report 14118582 (Version 2)
Quarter: 2017Q4

REPORT INFORMATION
  Report Type: Report from Study
  Country: NL (occurrence: NL)
  Receive Date: 20171024
  Receipt Date: 20171026
  Transmission Date: 20180321
  Serious: Yes (Hospitalization)
  Sender: FDA-Public Use
  Company Number: NL-AMGEN-NLDSL2017159846

PATIENT
  Age: 61 Year
  Sex: Female

DRUGS (1)
  1. NEULASTA [Suspect]
     Active Substance: PEGFILGRASTIM
     Indication: NEUTROPENIA
     Dosage: 6 MG, Q3WK
     Route: 058

REACTIONS (3)
  - Calcium deficiency [Unknown]
  - Magnesium deficiency [Unknown]
  - Unevaluable event [Unknown]

NARRATIVE: CASE EVENT DATE: 201710
